FAERS Safety Report 11506022 (Version 1)
Quarter: 2015Q3

REPORT INFORMATION
  Report Type: Spontaneous
  Country: JP (occurrence: None)
  Receive Date: 20150911
  Receipt Date: 20150911
  Transmission Date: 20151125
  Serious: Yes (Death, Other)
  Sender: FDA-Public Use
  Company Number: 2015HINLIT0729

PATIENT
  Age: 5 Decade
  Sex: Male
  Weight: 61 kg

DRUGS (3)
  1. CLARYTHROMYCIN [Suspect]
     Active Substance: CLARITHROMYCIN
     Indication: RASH PRURITIC
  2. SILDENAFIL (SILDENAFIL) UNKNOWN [Suspect]
     Active Substance: SILDENAFIL
     Indication: PRODUCT USED FOR UNKNOWN INDICATION
  3. KALETRA [Suspect]
     Active Substance: LOPINAVIR\RITONAVIR
     Indication: HIV INFECTION

REACTIONS (7)
  - Cardiac failure acute [None]
  - Haemorrhage [None]
  - Pulmonary congestion [None]
  - Sudden cardiac death [None]
  - Drug interaction [None]
  - Arrhythmogenic right ventricular dysplasia [None]
  - Mesenteric haematoma [None]
